FAERS Safety Report 18920973 (Version 1)
Quarter: 2021Q1

REPORT INFORMATION
  Report Type: Spontaneous
  Country: US (occurrence: US)
  Receive Date: 20210222
  Receipt Date: 20210222
  Transmission Date: 20210420
  Serious: Yes (Hospitalization)
  Sender: FDA-Public Use
  Company Number: US-AUROBINDO-AUR-APL-2019-076870

PATIENT
  Age: 27 Year
  Sex: Male

DRUGS (20)
  1. VALPROIC ACID. [Suspect]
     Active Substance: VALPROIC ACID
     Indication: INTENTIONAL SELF-INJURY
     Dosage: 250MG/5ML
     Route: 050
  2. CHLORPROMAZINE. [Concomitant]
     Active Substance: CHLORPROMAZINE
     Indication: INTENTIONAL SELF-INJURY
     Dosage: 350 MILLIGRAM, TOTAL
     Route: 042
  3. GABAPENTIN. [Suspect]
     Active Substance: GABAPENTIN
     Indication: INTENTIONAL SELF-INJURY
     Dosage: 800 MILLIGRAM, 3 TIMES A DAY
     Route: 050
  4. CLONIDINE. [Suspect]
     Active Substance: CLONIDINE
     Indication: INTENTIONAL SELF-INJURY
     Dosage: 0.1 MILLIGRAM, 3 TIMES A DAY
     Route: 050
  5. HALOPERIDOL. [Concomitant]
     Active Substance: HALOPERIDOL
     Indication: AGITATION
  6. NALOXONE [Concomitant]
     Active Substance: NALOXONE
     Indication: ANALGESIC THERAPY
     Dosage: 1 MG, 1 DAY
     Route: 050
  7. VANCOMYCIN [Concomitant]
     Active Substance: VANCOMYCIN
     Indication: PNEUMONIA
     Route: 065
  8. OXYCODONE [Concomitant]
     Active Substance: OXYCODONE
     Indication: ANALGESIC THERAPY
     Dosage: 27 MG, 1 DAY
     Route: 050
  9. HALOPERIDOL. [Concomitant]
     Active Substance: HALOPERIDOL
     Indication: INTENTIONAL SELF-INJURY
     Dosage: 30 MILLIGRAM
     Route: 042
  10. LORAZEPAM. [Concomitant]
     Active Substance: LORAZEPAM
     Indication: AGITATION
     Dosage: 4 MG, UNK, EVERY 4 HOURS AS NEEDED
     Route: 042
  11. GABAPENTIN. [Suspect]
     Active Substance: GABAPENTIN
     Dosage: 500 MG, 4 TIMES A DAY
     Route: 050
  12. NALOXONE [Concomitant]
     Active Substance: NALOXONE
     Dosage: 1.4 MG, 1 DAY
     Route: 050
  13. ACYCLOVIR. [Concomitant]
     Active Substance: ACYCLOVIR
     Indication: PROPHYLAXIS
     Dosage: UNK
     Route: 065
  14. BUSPIRONE HCL [Suspect]
     Active Substance: BUSPIRONE HYDROCHLORIDE
     Indication: INTENTIONAL SELF-INJURY
     Dosage: 20 MILLIGRAM, FOUR TIMES/DAY
     Route: 050
  15. PIPERACILLIN/TAZOBACTAM [Concomitant]
     Active Substance: PIPERACILLIN SODIUM\TAZOBACTAM SODIUM
     Indication: PNEUMONIA
     Dosage: UNK
     Route: 065
  16. OLANZAPINE. [Suspect]
     Active Substance: OLANZAPINE
     Indication: INTENTIONAL SELF-INJURY
     Dosage: 40 MILLIGRAM
     Route: 050
  17. LORAZEPAM. [Concomitant]
     Active Substance: LORAZEPAM
     Dosage: UNK, (2 MG/ML) 1 ML
     Route: 050
  18. NALOXONE [Concomitant]
     Active Substance: NALOXONE
     Dosage: 2.3 MG, 1 DAY
     Route: 050
  19. FENTANYL. [Concomitant]
     Active Substance: FENTANYL
     Indication: FRACTURE
     Dosage: 25 MICROGRAM
     Route: 042
  20. ACYCLOVIR. [Concomitant]
     Active Substance: ACYCLOVIR
     Indication: HYPERKERATOSIS

REACTIONS (5)
  - Hyperammonaemia [Unknown]
  - Hypotension [Unknown]
  - Transaminases increased [Unknown]
  - Sedation [Unknown]
  - Drug ineffective [Unknown]
